FAERS Safety Report 5963653-2 (Version None)
Quarter: 2008Q4

REPORT INFORMATION
  Report Type: 
  Country: None (occurrence: None)
  Receive Date: 20081119
  Receipt Date: 20080724
  Transmission Date: 20090506
  Serious: No
  Sender: FDA-Public Use
  Company Number: WAES 0807USA04820

PATIENT
  Age: 69 Year
  Sex: Female

DRUGS (5)
  1. JANUVIA [Suspect]
     Indication: TYPE 2 DIABETES MELLITUS
     Dosage: 100 MG/DAILY/PO : 50 MG/DAILY/PO
     Route: 048
     Dates: start: 20080101, end: 20080101
  2. JANUVIA [Suspect]
     Indication: TYPE 2 DIABETES MELLITUS
     Dosage: 100 MG/DAILY/PO : 50 MG/DAILY/PO
     Route: 048
     Dates: start: 20080101
  3. BENICAR [Concomitant]
  4. NEXIUM [Concomitant]
  5. GLIMEPIRIDE [Concomitant]

REACTIONS (2)
  - GLYCOSYLATED HAEMOGLOBIN INCREASED [None]
  - WEIGHT INCREASED [None]
